FAERS Safety Report 5308286-6 (Version None)
Quarter: 2007Q2

REPORT INFORMATION
  Report Type: 
  Country: None (occurrence: None)
  Receive Date: 20070426
  Receipt Date: 20070416
  Transmission Date: 20071010
  Serious: Yes (Hospitalization, Other)
  Sender: FDA-Public Use
  Company Number: HQWYE974514JUL06

PATIENT
  Sex: Male

DRUGS (15)
  1. SIROLIMUS [Suspect]
     Indication: PROPHYLAXIS AGAINST TRANSPLANT REJECTION
     Route: 048
     Dates: start: 20060611, end: 20060616
  2. SIROLIMUS [Suspect]
     Route: 048
     Dates: start: 20060617, end: 20061030
  3. BACTRIM DS [Concomitant]
     Dosage: UNSPECIFIED
     Dates: start: 20060418
  4. NEXIUM [Concomitant]
     Dosage: UNSPECIFIED
     Dates: start: 20060418
  5. AMARYL [Concomitant]
     Dosage: UNSPECIFIED
     Dates: start: 20060509
  6. BENADRYL [Concomitant]
     Dosage: UNSPECIFIED
     Dates: start: 20060901
  7. CELLCEPT [Suspect]
     Route: 048
     Dates: start: 20060414, end: 20061030
  8. ZOSYN [Suspect]
     Indication: LIVER ABSCESS
     Dates: start: 20061027, end: 20061102
  9. CELEXA [Concomitant]
     Dosage: UNSPECIFIED
     Dates: start: 20061104
  10. GLIPIZIDE [Concomitant]
     Dosage: UNSPECIFIED
     Dates: start: 20061018
  11. ACTIGALL [Concomitant]
     Dosage: UNSPECIFIED
     Dates: start: 20061018
  12. ACYCLOVIR [Concomitant]
     Dosage: UNSPECIFIED
     Dates: start: 20060418
  13. TACROLIMUS [Concomitant]
     Dates: start: 20060415, end: 20060420
  14. TACROLIMUS [Concomitant]
     Dates: start: 20060421, end: 20060610
  15. TACROLIMUS [Concomitant]
     Dosage: UNSPECIFIED
     Dates: start: 20061030

REACTIONS (6)
  - ANASTOMOTIC STENOSIS [None]
  - CHOLANGITIS [None]
  - CLOSTRIDIUM DIFFICILE COLITIS [None]
  - HEPATIC ARTERY THROMBOSIS [None]
  - LIVER ABSCESS [None]
  - POLYNEUROPATHY [None]
